FAERS Safety Report 16710066 (Version 2)
Quarter: 2019Q3

REPORT INFORMATION
  Report Type: Spontaneous
  Country: US (occurrence: US)
  Receive Date: 20190816
  Receipt Date: 20190816
  Transmission Date: 20191004
  Serious: Yes (Other)
  Sender: FDA-Public Use
  Company Number: PHHY2019US181225

PATIENT
  Age: 7 Year
  Sex: Male

DRUGS (10)
  1. PENTOBARBITAL. [Suspect]
     Active Substance: PENTOBARBITAL
     Indication: FEBRILE INFECTION-RELATED EPILEPSY SYNDROME
     Route: 065
  2. MIDAZOLAM [Suspect]
     Active Substance: MIDAZOLAM HYDROCHLORIDE
     Indication: FEBRILE INFECTION-RELATED EPILEPSY SYNDROME
     Route: 065
  3. TOPIRAMATE. [Suspect]
     Active Substance: TOPIRAMATE
     Indication: FEBRILE INFECTION-RELATED EPILEPSY SYNDROME
     Route: 065
  4. LORAZEPAM. [Suspect]
     Active Substance: LORAZEPAM
     Indication: FEBRILE INFECTION-RELATED EPILEPSY SYNDROME
     Route: 065
  5. RUFINAMIDE [Suspect]
     Active Substance: RUFINAMIDE
     Indication: FEBRILE INFECTION-RELATED EPILEPSY SYNDROME
     Route: 065
  6. TRIHEXYPHENIDYL [Suspect]
     Active Substance: TRIHEXYPHENIDYL
     Indication: FEBRILE INFECTION-RELATED EPILEPSY SYNDROME
     Route: 065
  7. DIVALPROEX SODIUM DR [Suspect]
     Active Substance: DIVALPROEX SODIUM
     Indication: FEBRILE INFECTION-RELATED EPILEPSY SYNDROME
     Route: 065
  8. CLOBAZAM. [Suspect]
     Active Substance: CLOBAZAM
     Indication: FEBRILE INFECTION-RELATED EPILEPSY SYNDROME
     Route: 065
  9. CARBAMAZEPINE. [Suspect]
     Active Substance: CARBAMAZEPINE
     Indication: FEBRILE INFECTION-RELATED EPILEPSY SYNDROME
     Route: 065
  10. LEVETIRACETAM. [Suspect]
     Active Substance: LEVETIRACETAM
     Indication: FEBRILE INFECTION-RELATED EPILEPSY SYNDROME
     Route: 065

REACTIONS (8)
  - Blood creatinine increased [Unknown]
  - Proteinuria [Unknown]
  - Hypokalaemia [Unknown]
  - Hypophosphataemia [Unknown]
  - Acidosis [Unknown]
  - Glycosuria [Unknown]
  - Fanconi syndrome [Unknown]
  - Product use in unapproved indication [Unknown]
